FAERS Safety Report 12265231 (Version 3)
Quarter: 2016Q3

REPORT INFORMATION
  Report Type: Report from Study
  Country: CA (occurrence: CA)
  Receive Date: 20160413
  Receipt Date: 20160727
  Transmission Date: 20161109
  Serious: Yes (Life-Threatening, Hospitalization, Other)
  Sender: FDA-Public Use
  Company Number: CA-JNJFOC-20151206846

PATIENT
  Age: 21 Year
  Sex: Female
  Weight: 57.15 kg

DRUGS (5)
  1. FLAGYL [Suspect]
     Active Substance: METRONIDAZOLE\METRONIDAZOLE HYDROCHLORIDE
     Indication: KIDNEY INFECTION
     Route: 048
     Dates: start: 20151227, end: 20160107
  2. ENTOCORT [Concomitant]
     Active Substance: BUDESONIDE
     Route: 065
  3. REMICADE [Suspect]
     Active Substance: INFLIXIMAB
     Indication: CROHN^S DISEASE
     Dosage: INFUSION NUMBER 18
     Route: 042
     Dates: start: 20150405
  4. REMICADE [Suspect]
     Active Substance: INFLIXIMAB
     Indication: CROHN^S DISEASE
     Route: 042
     Dates: start: 20140417
  5. CIPRO [Suspect]
     Active Substance: CIPROFLOXACIN HYDROCHLORIDE
     Indication: KIDNEY INFECTION
     Route: 048
     Dates: start: 20151227, end: 20160107

REACTIONS (12)
  - Injection site infection [Unknown]
  - Product use issue [Unknown]
  - Kidney infection [Recovered/Resolved]
  - Staphylococcal infection [Recovering/Resolving]
  - Off label use [Unknown]
  - Erythema of eyelid [Unknown]
  - Pneumonia [Recovered/Resolved]
  - Crohn^s disease [Recovered/Resolved]
  - Urinary tract infection [Unknown]
  - Eyelid oedema [Unknown]
  - Intestinal stenosis [Recovered/Resolved]
  - Thrombosis [Recovered/Resolved]

NARRATIVE: CASE EVENT DATE: 20140417
